FAERS Safety Report 13278358 (Version 3)
Quarter: 2017Q1

REPORT INFORMATION
  Report Type: Spontaneous
  Country: CN (occurrence: CN)
  Receive Date: 20170228
  Receipt Date: 20170310
  Transmission Date: 20170428
  Serious: Yes (Death, Hospitalization, Other)
  Sender: FDA-Public Use
  Company Number: CN-BAYER-2017-031376

PATIENT
  Age: 31 Year
  Sex: Male

DRUGS (4)
  1. ASPISOL [Concomitant]
     Active Substance: ASPIRIN LYSINE
     Indication: PNEUMONIA
     Dosage: UNK
  2. AVELOX [Suspect]
     Active Substance: MOXIFLOXACIN HYDROCHLORIDE
     Indication: PNEUMONIA
     Dosage: UNK
     Route: 048
  3. AVELOX [Suspect]
     Active Substance: MOXIFLOXACIN HYDROCHLORIDE
     Indication: INFECTION
     Dosage: UNK
  4. AVELOX [Suspect]
     Active Substance: MOXIFLOXACIN HYDROCHLORIDE
     Indication: PNEUMONIA
     Dosage: 0.4 G, QD

REACTIONS (13)
  - Blister [Not Recovered/Not Resolved]
  - Eyelid bleeding [None]
  - Skin exfoliation [Not Recovered/Not Resolved]
  - Acquired epidermolysis bullosa [None]
  - Hypersensitivity [Not Recovered/Not Resolved]
  - Rash [None]
  - Death [Fatal]
  - Dermatitis bullous [Not Recovered/Not Resolved]
  - Liver injury [None]
  - Pyrexia [Not Recovered/Not Resolved]
  - Dermatitis exfoliative [None]
  - Infection [None]
  - Product quality issue [None]

NARRATIVE: CASE EVENT DATE: 2017
